FAERS Safety Report 11105804 (Version 8)
Quarter: 2018Q4

REPORT INFORMATION
  Report Type: Report from Study
  Country: BR (occurrence: BR)
  Receive Date: 20150512
  Receipt Date: 20181222
  Transmission Date: 20190204
  Serious: Yes (Hospitalization, Other)
  Sender: FDA-Public Use
  Company Number: BR-ROCHE-1576310

PATIENT
  Age: 47 Year
  Sex: Female
  Weight: 93 kg

DRUGS (18)
  1. ACTEMRA [Suspect]
     Active Substance: TOCILIZUMAB
     Dosage: TOTAL MONTHLY DOSE 560 MG
     Route: 042
     Dates: start: 201502
  2. DIOVAN [Concomitant]
     Active Substance: VALSARTAN
     Indication: HYPERTENSION
  3. ACTEMRA [Suspect]
     Active Substance: TOCILIZUMAB
     Dosage: TOTAL MONTHLY DOSE 560 MG
     Route: 042
     Dates: start: 201503
  4. CILOSTAZOL. [Concomitant]
     Active Substance: CILOSTAZOL
  5. UNSPECIFIED DRUGS [Concomitant]
     Active Substance: UNSPECIFIED INGREDIENT
  6. ATENOLOL. [Concomitant]
     Active Substance: ATENOLOL
     Indication: HYPERTENSION
  7. ACTEMRA [Suspect]
     Active Substance: TOCILIZUMAB
     Dosage: TOTAL MONTHLY DOSE 560 MG
     Route: 042
     Dates: start: 201501
  8. NALDECON (CARBINOXAMINE/PARACETAMOL/PHENYLEPHRINE) [Concomitant]
  9. METICORTEN [Concomitant]
     Active Substance: PREDNISONE
     Route: 065
  10. PURAN [Concomitant]
     Active Substance: LEVOTHYROXINE SODIUM
     Indication: THYROID DISORDER
  11. ACTEMRA [Suspect]
     Active Substance: TOCILIZUMAB
     Indication: TAKAYASU^S ARTERITIS
     Dosage: MOST RECENT DOSE WAS ADMINISTERED ON 01/AUG/2017
     Route: 042
     Dates: start: 20131212
  12. LEFLUNOMIDE. [Concomitant]
     Active Substance: LEFLUNOMIDE
     Route: 048
  13. CLOPIDOGREL [Concomitant]
     Active Substance: CLOPIDOGREL BISULFATE
     Indication: TAKAYASU^S ARTERITIS
     Route: 048
  14. PREDNISONE. [Concomitant]
     Active Substance: PREDNISONE
     Indication: TAKAYASU^S ARTERITIS
     Route: 048
  15. ACTEMRA [Suspect]
     Active Substance: TOCILIZUMAB
     Indication: RHEUMATOID ARTHRITIS
     Dosage: TOTAL MONTHLY DOSE 560 MG
     Route: 042
     Dates: start: 201504
  16. SOMALGEN [Concomitant]
  17. ATENSINA [Concomitant]
     Active Substance: CLONIDINE
     Indication: HYPERTENSION
  18. PLAVIX [Concomitant]
     Active Substance: CLOPIDOGREL BISULFATE

REACTIONS (13)
  - Arthralgia [Recovering/Resolving]
  - Sinusitis [Recovered/Resolved]
  - Poor venous access [Not Recovered/Not Resolved]
  - Weight loss poor [Recovering/Resolving]
  - Off label use [Unknown]
  - Weight increased [Recovering/Resolving]
  - Arthralgia [Recovering/Resolving]
  - Cholelithiasis [Not Recovered/Not Resolved]
  - Gallbladder disorder [Recovering/Resolving]
  - Heart rate abnormal [Unknown]
  - Intentional product use issue [Unknown]
  - Hypertension [Recovering/Resolving]
  - Nasopharyngitis [Recovered/Resolved]

NARRATIVE: CASE EVENT DATE: 201504
